FAERS Safety Report 17713315 (Version 1)
Quarter: 2020Q2

REPORT INFORMATION
  Report Type: Spontaneous
  Country: US (occurrence: US)
  Receive Date: 20200427
  Receipt Date: 20200427
  Transmission Date: 20200714
  Serious: Yes (Other)
  Sender: FDA-Public Use
  Company Number: None

PATIENT
  Age: 68 Year
  Sex: Female
  Weight: 57.15 kg

DRUGS (6)
  1. AMOX-CLAV 875-125MG [Suspect]
     Active Substance: AMOXICILLIN\CLAVULANATE POTASSIUM
     Indication: DIVERTICULITIS
     Dosage: ?          QUANTITY:20 TABLET(S);?
     Route: 048
  2. MAGNESIUM [Concomitant]
     Active Substance: MAGNESIUM
  3. MULTI-VITAMIN [Concomitant]
     Active Substance: .ALPHA.-TOCOPHEROL ACETATE, DL-\ASCORBIC ACID\CYANOCOBALAMIN\FLUORIDE ION\FOLIC ACID\NIACIN\PYRIDOXINE\RIBOFLAVIN\THIAMINE\VITAMIN A\VITAMIN D
  4. ESTRADIOL. [Concomitant]
     Active Substance: ESTRADIOL
  5. FISH OIL [Concomitant]
     Active Substance: FISH OIL
  6. CALCIUM [Concomitant]
     Active Substance: CALCIUM

REACTIONS (7)
  - Head injury [None]
  - Face injury [None]
  - Syncope [None]
  - Vomiting [None]
  - Diarrhoea [None]
  - Loss of consciousness [None]
  - Skin laceration [None]

NARRATIVE: CASE EVENT DATE: 20200303
